FAERS Safety Report 24936182 (Version 1)
Quarter: 2025Q1

REPORT INFORMATION
  Report Type: Report from Study
  Country: US (occurrence: US)
  Receive Date: 20250206
  Receipt Date: 20250206
  Transmission Date: 20250409
  Serious: Yes (Other)
  Sender: EXELIXIS
  Company Number: US-EXELIXIS-EXL-2024-001767

PATIENT
  Sex: Male
  Weight: 79.365 kg

DRUGS (6)
  1. CABOMETYX [Suspect]
     Active Substance: CABOZANTINIB S-MALATE
     Indication: Renal cancer
     Dosage: 40 MG, QD
     Route: 048
     Dates: start: 20241018
  2. OPDIVO [Concomitant]
     Active Substance: NIVOLUMAB
  3. IRON [Concomitant]
     Active Substance: IRON
  4. METOPROLOL [Concomitant]
     Active Substance: METOPROLOL
  5. LISINOPRIL [Concomitant]
     Active Substance: LISINOPRIL
  6. AMOXICILLIN [Concomitant]
     Active Substance: AMOXICILLIN
     Indication: Tooth disorder

REACTIONS (1)
  - Blood pressure increased [Unknown]
